FAERS Safety Report 10571689 (Version 1)
Quarter: 2014Q4

REPORT INFORMATION
  Report Type: Report from Study
  Country: US (occurrence: US)
  Receive Date: 20141107
  Receipt Date: 20141107
  Transmission Date: 20150529
  Serious: Yes (Other)
  Sender: FDA-Public Use
  Company Number: US-PURDUE-USA-2014-0118792

PATIENT
  Age: 74 Year
  Sex: Female

DRUGS (2)
  1. OXYCONTIN [Suspect]
     Active Substance: OXYCODONE HYDROCHLORIDE
     Indication: SCIATICA
     Dosage: 30 MG, Q12H
     Route: 048
     Dates: start: 20141010
  2. OXYCONTIN [Suspect]
     Active Substance: OXYCODONE HYDROCHLORIDE
     Indication: SPINAL COLUMN STENOSIS
     Dosage: UNK
     Route: 048
     Dates: start: 2013

REACTIONS (3)
  - Bruxism [Unknown]
  - Cholelithiasis [Unknown]
  - Rectal cancer [Unknown]

NARRATIVE: CASE EVENT DATE: 201409
